FAERS Safety Report 7612376-2 (Version None)
Quarter: 2011Q3

REPORT INFORMATION
  Report Type: 
  Country: None (occurrence: None)
  Receive Date: 20110716
  Receipt Date: 20110706
  Transmission Date: 20111222
  Serious: Yes (Hospitalization, Other)
  Sender: FDA-Public Use
  Company Number: US-ASTRAZENECA-2011SE40312

PATIENT
  Age: 59 Year
  Sex: Female
  Weight: 59.4 kg

DRUGS (4)
  1. CRESTOR [Suspect]
     Route: 048
  2. CRESTOR [Suspect]
     Route: 048
     Dates: end: 20110426
  3. NIASTAN [Concomitant]
  4. FISH OIL [Concomitant]

REACTIONS (8)
  - MUSCLE RUPTURE [None]
  - PALPITATIONS [None]
  - SHOULDER OPERATION [None]
  - MYALGIA [None]
  - LIP INJURY [None]
  - CHEST PAIN [None]
  - TENDON OPERATION [None]
  - BRUXISM [None]
